FAERS Safety Report 9850853 (Version 1)
Quarter: 2014Q1

REPORT INFORMATION
  Report Type: Spontaneous
  Country: US (occurrence: US)
  Receive Date: 20140128
  Receipt Date: 20140128
  Transmission Date: 20141002
  Serious: Yes (Other)
  Sender: FDA-Public Use
  Company Number: US-ABBVIE-14P-163-1191751-00

PATIENT
  Age: 55 Year
  Sex: Male
  Weight: 90.35 kg

DRUGS (4)
  1. HUMIRA [Suspect]
     Indication: PSORIASIS
     Route: 058
     Dates: start: 201305
  2. BLOOD PRESSURE MEDICATION [Concomitant]
     Indication: HYPERTENSION
  3. SIMVASTATIN [Concomitant]
     Indication: BLOOD CHOLESTEROL INCREASED
  4. METFORMIN [Concomitant]
     Indication: DIABETES MELLITUS

REACTIONS (4)
  - Testicular pain [Recovered/Resolved]
  - Testicular hypertrophy [Recovered/Resolved]
  - Spermatocele [Recovered/Resolved]
  - Platelet count decreased [Unknown]
